FAERS Safety Report 18462518 (Version 1)
Quarter: 2020Q4

REPORT INFORMATION
  Report Type: Spontaneous
  Country: CN (occurrence: CN)
  Receive Date: 20201104
  Receipt Date: 20201104
  Transmission Date: 20210114
  Serious: Yes (Other)
  Sender: FDA-Public Use
  Company Number: CN-GLAXOSMITHKLINE-CN2020APC217638

PATIENT
  Age: 34 Year
  Sex: Female
  Weight: 50 kg

DRUGS (2)
  1. BENLYSTA [Suspect]
     Active Substance: BELIMUMAB
     Indication: SYSTEMIC LUPUS ERYTHEMATOSUS
     Dosage: 480 MG, QD
     Route: 041
     Dates: start: 20201028, end: 20201028
  2. SODIUM CHLORIDE INJECTION [Concomitant]
     Active Substance: SODIUM CHLORIDE
     Indication: SYSTEMIC LUPUS ERYTHEMATOSUS
     Dosage: 2560 ML, QD
     Route: 041
     Dates: start: 20201028, end: 20201028

REACTIONS (6)
  - Asthenia [Recovering/Resolving]
  - Dizziness [Recovering/Resolving]
  - Heart rate increased [Recovering/Resolving]
  - Hypertension [Recovering/Resolving]
  - Chest discomfort [Recovering/Resolving]
  - Palpitations [Recovering/Resolving]

NARRATIVE: CASE EVENT DATE: 20201028
